FAERS Safety Report 15291155 (Version 1)
Quarter: 2018Q3

REPORT INFORMATION
  Report Type: Spontaneous
  Country: US (occurrence: US)
  Receive Date: 20180817
  Receipt Date: 20180817
  Transmission Date: 20181010
  Serious: Yes (Other)
  Sender: FDA-Public Use
  Company Number: US-SA-2017SA262640

PATIENT
  Age: 64 Year
  Sex: Female
  Weight: 69 kg

DRUGS (7)
  1. NEUPOGEN [Concomitant]
     Active Substance: FILGRASTIM
  2. TAXOTERE [Suspect]
     Active Substance: DOCETAXEL
     Indication: BREAST CANCER FEMALE
     Dosage: 120 MG, Q3W
     Route: 042
     Dates: start: 20100621, end: 20100621
  3. TAXOTERE [Suspect]
     Active Substance: DOCETAXEL
     Dosage: 120 MG, Q3W
     Route: 042
     Dates: start: 20101004, end: 20101004
  4. LISINOPRIL. [Concomitant]
     Active Substance: LISINOPRIL
  5. SIMVASTATIN. [Concomitant]
     Active Substance: SIMVASTATIN
  6. HCTZ [Concomitant]
     Active Substance: HYDROCHLOROTHIAZIDE
  7. PARAPLATIN [Concomitant]
     Active Substance: CARBOPLATIN

REACTIONS (6)
  - Anxiety [Unknown]
  - Impaired quality of life [Unknown]
  - Psychological trauma [Unknown]
  - Pain [Unknown]
  - Alopecia [Recovering/Resolving]
  - Emotional distress [Unknown]
